FAERS Safety Report 7068987-9 (Version None)
Quarter: 2010Q4

REPORT INFORMATION
  Report Type: 
  Country: None (occurrence: None)
  Receive Date: 20101028
  Receipt Date: 20101021
  Transmission Date: 20110411
  Serious: Yes (Other)
  Sender: FDA-Public Use
  Company Number: US-GENZYME-CERD-1000025

PATIENT

DRUGS (1)
  1. CEREDASE [Suspect]
     Indication: GAUCHER'S DISEASE
     Route: 042

REACTIONS (7)
  - ABNORMAL DREAMS [None]
  - CARDIAC FAILURE CONGESTIVE [None]
  - CARDIOMEGALY [None]
  - CARDIOMYOPATHY [None]
  - HYPERTENSION [None]
  - INCREASED TENDENCY TO BRUISE [None]
  - PULMONARY HYPERTENSION [None]
